FAERS Safety Report 16000966 (Version 3)
Quarter: 2019Q2

REPORT INFORMATION
  Report Type: Spontaneous
  Country: US (occurrence: US)
  Receive Date: 20190225
  Receipt Date: 20190426
  Transmission Date: 20190711
  Serious: Yes (Other)
  Sender: FDA-Public Use
  Company Number: US-ASTRAZENECA-2018SF21869

PATIENT
  Sex: Female

DRUGS (16)
  1. NEXIUM 24HR [Suspect]
     Active Substance: ESOMEPRAZOLE MAGNESIUM
     Route: 048
  2. PRILOSEC [Suspect]
     Active Substance: OMEPRAZOLE MAGNESIUM
     Route: 048
  3. PREVACID [Suspect]
     Active Substance: LANSOPRAZOLE
     Route: 065
  4. PREVACID 24 HR [Suspect]
     Active Substance: LANSOPRAZOLE
     Route: 065
  5. NEXIUM [Suspect]
     Active Substance: ESOMEPRAZOLE MAGNESIUM
     Route: 048
     Dates: start: 201605, end: 201612
  6. ALBUTEROL. [Concomitant]
     Active Substance: ALBUTEROL
  7. LASIX [Concomitant]
     Active Substance: FUROSEMIDE
  8. FLUTICASONE. [Concomitant]
     Active Substance: FLUTICASONE
  9. TRAMADOL. [Concomitant]
     Active Substance: TRAMADOL
  10. LEVOTHYROXINE. [Concomitant]
     Active Substance: LEVOTHYROXINE
  11. NEXIUM [Suspect]
     Active Substance: ESOMEPRAZOLE MAGNESIUM
     Route: 048
     Dates: start: 20160502, end: 20161216
  12. ROBAXIN [Concomitant]
     Active Substance: METHOCARBAMOL
  13. PREMARIN [Concomitant]
     Active Substance: ESTROGENS, CONJUGATED
  14. VITAMIN D2 [Concomitant]
     Active Substance: ERGOCALCIFEROL
  15. PRILOSEC OTC [Suspect]
     Active Substance: OMEPRAZOLE MAGNESIUM
     Route: 048
  16. NAPROXEN. [Concomitant]
     Active Substance: NAPROXEN

REACTIONS (3)
  - Chronic kidney disease [Unknown]
  - Tubulointerstitial nephritis [Unknown]
  - Renal injury [Unknown]
